FAERS Safety Report 9358847 (Version 1)
Quarter: 2013Q2

REPORT INFORMATION
  Report Type: Spontaneous
  Country: GB (occurrence: GB)
  Receive Date: 20130620
  Receipt Date: 20130620
  Transmission Date: 20140414
  Serious: Yes (Hospitalization)
  Sender: FDA-Public Use
  Company Number: GB-JHP PHARMACEUTICALS, LLC-JHP201300394

PATIENT
  Age: 43 Year
  Sex: Female

DRUGS (7)
  1. ADRENALIN CHLORIDE SOLUTION [Suspect]
     Indication: ANAPHYLACTIC REACTION
     Dosage: 0.5 MG, X 2
     Route: 030
  2. PROPANOLOL [Interacting]
     Indication: MIGRAINE
     Dosage: 80 MG, DAILY
  3. LANSOPRAZOLE [Concomitant]
  4. FEXOFENADINE [Concomitant]
  5. FLUCLOXACILLIN [Concomitant]
     Route: 048
  6. HYDROCORTISONE [Concomitant]
     Indication: ANAPHYLACTIC REACTION
     Route: 042
  7. CHLORPHENAMINE [Concomitant]
     Indication: ANAPHYLACTIC REACTION

REACTIONS (4)
  - Angina pectoris [Recovered/Resolved]
  - Potentiating drug interaction [Recovered/Resolved]
  - Drug effect decreased [None]
  - Electrocardiogram ST segment depression [None]
